FAERS Safety Report 11640986 (Version 1)
Quarter: 2015Q4

REPORT INFORMATION
  Report Type: Spontaneous
  Country: US (occurrence: US)
  Receive Date: 20151019
  Receipt Date: 20151019
  Transmission Date: 20160304
  Serious: Yes (Hospitalization)
  Sender: FDA-Public Use
  Company Number: US-ACTELION-A-US2015-125413

PATIENT
  Age: 43 Year
  Sex: Female

DRUGS (12)
  1. AMLODIPINE W/ATORVASTATIN [Concomitant]
     Active Substance: AMLODIPINE\ATORVASTATIN
  2. OPSUMIT [Suspect]
     Active Substance: MACITENTAN
     Indication: PULMONARY ARTERIAL HYPERTENSION
     Dosage: 10 MG, QD
     Route: 048
  3. NORTRIPTYLINE [Concomitant]
     Active Substance: NORTRIPTYLINE
  4. BENADRYL [Concomitant]
     Active Substance: DIPHENHYDRAMINE HYDROCHLORIDE
  5. CYMBALTA [Concomitant]
     Active Substance: DULOXETINE HYDROCHLORIDE
  6. RIOCIGUAT [Concomitant]
     Active Substance: RIOCIGUAT
  7. VICODIN [Concomitant]
     Active Substance: ACETAMINOPHEN\HYDROCODONE BITARTRATE
  8. LOSARTAN. [Concomitant]
     Active Substance: LOSARTAN
  9. BUPROPION. [Concomitant]
     Active Substance: BUPROPION
  10. LYRICA [Concomitant]
     Active Substance: PREGABALIN
  11. FUROSEMIDE. [Concomitant]
     Active Substance: FUROSEMIDE
  12. GABAPENTIN. [Concomitant]
     Active Substance: GABAPENTIN

REACTIONS (2)
  - Pneumonia [Recovered/Resolved]
  - Anaemia [Recovered/Resolved]
